FAERS Safety Report 12691760 (Version 2)
Quarter: 2016Q4

REPORT INFORMATION
  Report Type: Report from Study
  Country: CA (occurrence: CA)
  Receive Date: 20160826
  Receipt Date: 20161018
  Transmission Date: 20170207
  Serious: Yes (Other)
  Sender: FDA-Public Use
  Company Number: PHHY2015CA156997

PATIENT
  Sex: Female

DRUGS (2)
  1. GLEEVEC [Suspect]
     Active Substance: IMATINIB MESYLATE
     Indication: GASTROINTESTINAL STROMAL TUMOUR
     Dosage: 400 MG, QD (EVENING)
     Route: 048
     Dates: start: 20151026
  2. GLEEVEC [Suspect]
     Active Substance: IMATINIB MESYLATE
     Dosage: 400 MG, QD
     Route: 048

REACTIONS (10)
  - Joint stiffness [Unknown]
  - Pruritus generalised [Unknown]
  - Periorbital oedema [Unknown]
  - Pollakiuria [Unknown]
  - Tumour invasion [Unknown]
  - Eye pruritus [Unknown]
  - Joint swelling [Unknown]
  - Lethargy [Recovering/Resolving]
  - Fatigue [Unknown]
  - Peripheral swelling [Unknown]
